FAERS Safety Report 5013867-3 (Version None)
Quarter: 2006Q2

REPORT INFORMATION
  Report Type: 
  Country: None (occurrence: None)
  Receive Date: 20060525
  Receipt Date: 20060512
  Transmission Date: 20061013
  Serious: Yes (Other)
  Sender: FDA-Public Use
  Company Number: 2006064072

PATIENT
  Age: 70 Year
  Sex: Female
  Weight: 68 kg

DRUGS (6)
  1. LYRICA [Suspect]
     Indication: NEURALGIA
     Dosage: 150 MG, ORAL
     Route: 048
     Dates: start: 20050909, end: 20060331
  2. DOXAZOSIN [Concomitant]
  3. RAMIPRIL [Concomitant]
  4. FELODIPINE [Concomitant]
  5. BENDROFLUAZIDE (BENDROFLUMETHIAZIDE) [Concomitant]
  6. ATENOLOL [Concomitant]

REACTIONS (2)
  - EPISTAXIS [None]
  - THROMBOCYTOPENIA [None]
